FAERS Safety Report 5014709-2 (Version None)
Quarter: 2006Q2

REPORT INFORMATION
  Report Type: 
  Country: None (occurrence: None)
  Receive Date: 20060531
  Receipt Date: 20060419
  Transmission Date: 20061013
  Serious: Yes (Hospitalization)
  Sender: FDA-Public Use
  Company Number: US-GLAXOSMITHKLINE-A0602729A

PATIENT
  Age: 62 Year
  Sex: Male
  Weight: 94.5 kg

DRUGS (3)
  1. AVANDIA [Suspect]
     Indication: DIABETES MELLITUS
     Dosage: 8MG TWICE PER DAY
     Route: 048
     Dates: start: 20041001, end: 20060101
  2. ANTIDIABETIC [Concomitant]
     Indication: DRUG USE FOR UNKNOWN INDICATION
     Route: 065
     Dates: start: 20041001, end: 20050101
  3. INSULIN [Concomitant]
     Dates: start: 20060101

REACTIONS (10)
  - BLOOD GLUCOSE DECREASED [None]
  - BLOOD GLUCOSE FLUCTUATION [None]
  - CAPILLARY DISORDER [None]
  - DIABETIC RETINOPATHY [None]
  - EYE OEDEMA [None]
  - PARAESTHESIA ORAL [None]
  - RETINAL ANEURYSM [None]
  - SWELLING [None]
  - VISUAL ACUITY REDUCED [None]
  - WEIGHT INCREASED [None]
